FAERS Safety Report 9324751 (Version 1)
Quarter: 2013Q2

REPORT INFORMATION
  Report Type: Spontaneous
  Country: ES (occurrence: ES)
  Receive Date: 20130603
  Receipt Date: 20130603
  Transmission Date: 20140414
  Serious: Yes (Death)
  Sender: FDA-Public Use
  Company Number: ES-OTSUKA-US-2013-11056

PATIENT
  Age: 41 Year
  Sex: Male

DRUGS (4)
  1. BUSULFEX [Suspect]
     Indication: STEM CELL TRANSPLANT
     Dosage: UNK UNK, UNKNOWN
     Route: 065
  2. CLOFARABINE [Concomitant]
     Indication: PRECURSOR T-LYMPHOBLASTIC LYMPHOMA/LEUKAEMIA
  3. THIOTEPA [Concomitant]
     Indication: STEM CELL TRANSPLANT
  4. FLUDARABINE [Concomitant]
     Indication: STEM CELL TRANSPLANT

REACTIONS (1)
  - Death [Fatal]
